FAERS Safety Report 9562046 (Version 1)
Quarter: 2013Q3

REPORT INFORMATION
  Report Type: Spontaneous
  Country: US (occurrence: None)
  Receive Date: 20130830
  Receipt Date: 20130830
  Transmission Date: 20140515
  Serious: Yes (Hospitalization)
  Sender: FDA-Public Use
  Company Number: AMAG201203070

PATIENT
  Age: 68 Year
  Sex: Male
  Weight: 93 kg

DRUGS (4)
  1. FERAHEME (FERUMOXYTOL) INJECTION, 510MG [Suspect]
     Indication: IRON DEFICIENCY ANAEMIA
     Route: 042
     Dates: start: 20111203, end: 20111203
  2. LIPITOR (ATORVASTATIN CALCIUM) [Concomitant]
  3. ALLOPURINOL [Concomitant]
  4. PARICALCITOL [Concomitant]

REACTIONS (7)
  - Tachycardia [None]
  - Chest pain [None]
  - Dyspnoea [None]
  - Hypotension [None]
  - Somnolence [None]
  - Palpitations [None]
  - Chills [None]
